FAERS Safety Report 8427926-6 (Version None)
Quarter: 2012Q2

REPORT INFORMATION
  Report Type: 
  Country: None (occurrence: None)
  Receive Date: 20120611
  Receipt Date: 20120605
  Transmission Date: 20120825
  Serious: Yes (Life-Threatening, Other)
  Sender: FDA-Public Use
  Company Number: NL-ASTRAZENECA-2012SE37129

PATIENT
  Age: 24413 Day
  Sex: Female

DRUGS (1)
  1. BRILINTA [Suspect]
     Route: 048
     Dates: start: 20120520, end: 20120604

REACTIONS (1)
  - CARDIAC ARREST [None]
